FAERS Safety Report 21263266 (Version 1)
Quarter: 2022Q3

REPORT INFORMATION
  Report Type: Other
  Country: HN (occurrence: HN)
  Receive Date: 20220829
  Receipt Date: 20220829
  Transmission Date: 20221027
  Serious: No
  Sender: FDA-Public Use
  Company Number: HN-TOLMAR, INC.-22HN036289

PATIENT
  Sex: Male

DRUGS (2)
  1. ELIGARD [Suspect]
     Active Substance: LEUPROLIDE ACETATE
     Indication: Prostate cancer
     Dosage: 22.5 MILLIGRAM, Q 3 MONTH
     Route: 058
  2. ELIGARD [Suspect]
     Active Substance: LEUPROLIDE ACETATE
     Dosage: 22.5 MILLIGRAM, Q 3 MONTH
     Route: 058
     Dates: start: 20220822

REACTIONS (2)
  - COVID-19 [Unknown]
  - Blood pressure abnormal [Unknown]
